FAERS Safety Report 8458495-2 (Version None)
Quarter: 2012Q2

REPORT INFORMATION
  Report Type: 
  Country: None (occurrence: None)
  Receive Date: 20120622
  Receipt Date: 20120612
  Transmission Date: 20120825
  Serious: Yes (Other)
  Sender: FDA-Public Use
  Company Number: JP-VERTEX PHARMACEUTICALS INC.-AE-2012-008527

PATIENT
  Age: 74 Year
  Sex: Male

DRUGS (5)
  1. TELAVIC (TELAPREVIR) [Suspect]
     Route: 048
     Dates: start: 20120529, end: 20120608
  2. RIBAVIRIN [Concomitant]
     Route: 048
     Dates: start: 20120529, end: 20120608
  3. PEG-INTRON [Concomitant]
     Route: 058
     Dates: start: 20120605, end: 20120608
  4. PEG-INTRON [Concomitant]
     Route: 058
     Dates: start: 20120529
  5. VEGETAMIN-A [Concomitant]
     Route: 048
     Dates: end: 20120608

REACTIONS (2)
  - HEPATIC ENCEPHALOPATHY [None]
  - NEUTROPHIL COUNT DECREASED [None]
